FAERS Safety Report 9134791 (Version 1)
Quarter: 2013Q1

REPORT INFORMATION
  Report Type: Spontaneous
  Country: US (occurrence: US)
  Receive Date: 20130304
  Receipt Date: 20130304
  Transmission Date: 20140127
  Serious: Yes (Other)
  Sender: FDA-Public Use
  Company Number: US-ELI_LILLY_AND_COMPANY-US201302008784

PATIENT
  Sex: Female

DRUGS (4)
  1. HUMALOG LISPRO [Suspect]
     Indication: DIABETES MELLITUS
     Dosage: 12 U, PRN
     Dates: start: 2011
  2. HUMULIN NPH [Suspect]
     Indication: DIABETES MELLITUS
  3. HUMULIN 30% REGULAR, 70% NPH [Suspect]
     Indication: DIABETES MELLITUS
  4. NOVOLOG [Concomitant]

REACTIONS (1)
  - Visual impairment [Not Recovered/Not Resolved]
